FAERS Safety Report 21762057 (Version 5)
Quarter: 2022Q4

REPORT INFORMATION
  Report Type: Report from Study
  Country: IL (occurrence: IL)
  Receive Date: 20221221
  Receipt Date: 20221229
  Transmission Date: 20230113
  Serious: Yes (Hospitalization)
  Sender: FDA-Public Use
  Company Number: IL-ABBVIE-4241657

PATIENT
  Sex: Female

DRUGS (7)
  1. CARBIDOPA\LEVODOPA [Suspect]
     Active Substance: CARBIDOPA\LEVODOPA
     Indication: Parkinson^s disease
     Dosage: MORNING DOSE 7 CONTINUOUS DOSE DAY 4.5 EXTRA DOSE 0.8 CONTINUOUS DOSE NIGHT 2.6?RECEIVED NIGHT PUMP
     Route: 050
  2. CARBIDOPA\LEVODOPA [Suspect]
     Active Substance: CARBIDOPA\LEVODOPA
     Route: 050
     Dates: start: 20180131
  3. CARBIDOPA\LEVODOPA [Suspect]
     Active Substance: CARBIDOPA\LEVODOPA
     Dosage: EXTRA DOSE: 5ML
     Route: 050
  4. CARBIDOPA\LEVODOPA [Suspect]
     Active Substance: CARBIDOPA\LEVODOPA
     Dosage: MORNING DOSAGE(ML)  14.5, CONTINUOUS DOSAGE (ML/H)  4.7, EXTRA DOSAGE (ML)  5.0
     Route: 050
     Dates: start: 20221225
  5. CARBIDOPA\LEVODOPA [Suspect]
     Active Substance: CARBIDOPA\LEVODOPA
     Dosage: MORNING DOSAGE(ML)  14.5, CONTINUOUS DOSAGE (ML/H)  4.7, EXTRA DOSAGE (ML)  0.8?RECEIVED NIGHT PUMP
     Route: 050
  6. CARBIDOPA\LEVODOPA [Suspect]
     Active Substance: CARBIDOPA\LEVODOPA
     Dosage: MORNING DOSE 7 CONTINUOUS DOSE DAY 4.5 EXTRA DOSE 0.8 CONTINUOUS DOSE NIGHT 2.6
     Route: 050
  7. CARBIDOPA\LEVODOPA [Concomitant]
     Active Substance: CARBIDOPA\LEVODOPA
     Indication: Product used for unknown indication
     Route: 065

REACTIONS (17)
  - Hypokalaemia [Recovering/Resolving]
  - Tremor [Unknown]
  - Therapeutic product effect decreased [Unknown]
  - Pain [Unknown]
  - Joint stiffness [Unknown]
  - On and off phenomenon [Unknown]
  - Vomiting [Unknown]
  - Therapeutic product effect incomplete [Unknown]
  - Nausea [Unknown]
  - Device issue [Recovered/Resolved]
  - Dysphagia [Unknown]
  - Pain [Unknown]
  - Bruxism [Unknown]
  - Urinary tract infection [Unknown]
  - Chills [Unknown]
  - Therapeutic product effect incomplete [Unknown]
  - Urinary tract inflammation [Unknown]
